FAERS Safety Report 4582090-9 (Version None)
Quarter: 2005Q1

REPORT INFORMATION
  Report Type: 
  Country: None (occurrence: None)
  Receive Date: 20050119
  Receipt Date: 20040630
  Transmission Date: 20050727
  Serious: Yes (Hospitalization)
  Sender: FDA-Public Use
  Company Number: A032000402126

PATIENT
  Age: 78 Year
  Sex: Male
  Weight: 81.6475 kg

DRUGS (11)
  1. PLAVIX [Suspect]
     Indication: ARTERIOSCLEROSIS
     Dosage: 75 MG QD - ORAL
     Route: 048
     Dates: start: 20030601, end: 20040501
  2. PLAVIX [Suspect]
     Indication: STENT PLACEMENT
     Dosage: 75 MG QD - ORAL
     Route: 048
     Dates: start: 20030601, end: 20040501
  3. PANTOPRAZOLE SODIUM [Concomitant]
  4. LORAZEPAM [Concomitant]
  5. AMLODIPINE BESYLATE [Concomitant]
  6. ATENOLOL [Concomitant]
  7. ISOSRBIDE MONOITRATE [Concomitant]
  8. ATORVASATIN [Concomitant]
  9. GEMFIBROZIL [Concomitant]
  10. FLUOXETINE HYDROCHLORIDE [Concomitant]
  11. ACETYLSALICYLIC ACID SRT [Concomitant]

REACTIONS (5)
  - AMNESIA [None]
  - ANAEMIA [None]
  - BLOOD PRESSURE DECREASED [None]
  - HAEMORRHAGE [None]
  - SKIN DISCOLOURATION [None]
